FAERS Safety Report 7595754-X (Version None)
Quarter: 2011Q3

REPORT INFORMATION
  Report Type: 
  Country: None (occurrence: None)
  Receive Date: 20110707
  Receipt Date: 20110705
  Transmission Date: 20111222
  Serious: Yes (Other)
  Sender: FDA-Public Use
  Company Number: US-PFIZER INC-2008082787

PATIENT
  Sex: Male
  Weight: 3.2 kg

DRUGS (11)
  1. LORTAB [Concomitant]
     Indication: PAIN
     Dosage: 500MG/5MG
     Route: 064
     Dates: start: 20050803
  2. PROMETHAZINE HYDROCHLORIDE [Concomitant]
     Indication: NAUSEA
     Dosage: 25 MG, AS NEEDED
     Route: 064
     Dates: start: 20050803
  3. PROMETHAZINE HYDROCHLORIDE [Concomitant]
     Indication: VOMITING
  4. CIPROFLOXACIN [Concomitant]
     Dosage: 500 MG, UNK
     Route: 064
     Dates: start: 20050803
  5. TEQUIN [Concomitant]
     Dosage: 400 MG, UNK
     Route: 064
     Dates: start: 20050803
  6. TORADOL [Concomitant]
     Dosage: UNK
     Route: 064
     Dates: start: 20050803
  7. ZOLOFT [Suspect]
     Dosage: UNK
     Route: 064
  8. PRENATAL VITAMINS [Concomitant]
     Dosage: UNK
     Route: 064
  9. ACETAMINOPHEN [Concomitant]
     Dosage: UNK
     Route: 064
     Dates: start: 20050803
  10. ROCEPHIN [Concomitant]
     Indication: VAGINAL HAEMORRHAGE
     Dosage: UNK
     Route: 064
     Dates: start: 20060303
  11. BRETHINE [Concomitant]
     Indication: VAGINAL HAEMORRHAGE
     Dosage: 0.25 MG, UNK
     Route: 064
     Dates: start: 20060303

REACTIONS (2)
  - MATERNAL EXPOSURE DURING PREGNANCY [None]
  - CONGENITAL ANOMALY [None]
